FAERS Safety Report 21778036 (Version 1)
Quarter: 2022Q4

REPORT INFORMATION
  Report Type: Spontaneous
  Country: JP (occurrence: JP)
  Receive Date: 20221226
  Receipt Date: 20221226
  Transmission Date: 20230112
  Serious: Yes (Death, Other)
  Sender: FDA-Public Use
  Company Number: JP-GSK-JP2022JPN192076

PATIENT

DRUGS (8)
  1. BENLYSTA [Suspect]
     Active Substance: BELIMUMAB
     Indication: Systemic lupus erythematosus
     Dosage: 10 MG/KG EVERY 2 WEEKS
     Route: 041
     Dates: start: 20180207, end: 20180307
  2. BENLYSTA [Suspect]
     Active Substance: BELIMUMAB
     Dosage: 10 MG/KG, EVERY 4 WEEKS
     Route: 041
     Dates: start: 20180405, end: 20190213
  3. AMBRISENTAN [Concomitant]
     Active Substance: AMBRISENTAN
  4. PREDNISOLONE [Concomitant]
     Active Substance: PREDNISOLONE
     Indication: Systemic lupus erythematosus
     Dosage: 15 MG, 1D
     Route: 048
     Dates: start: 20180730
  5. WARFARIN POTASSIUM [Concomitant]
     Active Substance: WARFARIN POTASSIUM
  6. ADCIRCA [Concomitant]
     Active Substance: TADALAFIL
  7. BARACLUDE [Concomitant]
     Active Substance: ENTECAVIR
  8. OMEPRAZOLE [Concomitant]
     Active Substance: OMEPRAZOLE
     Indication: Prophylaxis against gastrointestinal ulcer

REACTIONS (2)
  - Subarachnoid haemorrhage [Fatal]
  - Intracranial aneurysm [Unknown]

NARRATIVE: CASE EVENT DATE: 20221008
